FAERS Safety Report 20192858 (Version 1)
Quarter: 2021Q4

REPORT INFORMATION
  Report Type: Spontaneous
  Country: US (occurrence: US)
  Receive Date: 20211216
  Receipt Date: 20211216
  Transmission Date: 20220303
  Serious: No
  Sender: FDA-Public Use
  Company Number: US-ENDO PHARMACEUTICALS INC-2021-010422

PATIENT
  Sex: Male

DRUGS (1)
  1. XIAFLEX [Suspect]
     Active Substance: COLLAGENASE CLOSTRIDIUM HISTOLYTICUM
     Indication: Peyronie^s disease
     Dosage: UNK UNK, UNKNOWN
     Route: 026

REACTIONS (5)
  - Testicular swelling [Recovered/Resolved]
  - Penis disorder [Unknown]
  - Penile contusion [Recovered/Resolved]
  - Contusion [Recovered/Resolved]
  - Penile swelling [Recovered/Resolved]
